FAERS Safety Report 12854454 (Version 1)
Quarter: 2016Q4

REPORT INFORMATION
  Report Type: Spontaneous
  Country: CN (occurrence: CN)
  Receive Date: 20161017
  Receipt Date: 20161017
  Transmission Date: 20170207
  Serious: Yes (Life-Threatening, Other)
  Sender: FDA-Public Use
  Company Number: CN-FRESENIUS KABI-FK201607678

PATIENT
  Sex: Male

DRUGS (3)
  1. SALVIA MILTIORRHIZA [Concomitant]
     Active Substance: HERBALS
     Indication: PROMOTION OF PERIPHERAL CIRCULATION
     Route: 041
     Dates: start: 20160222, end: 20160222
  2. INTRALIPID [Suspect]
     Active Substance: EGG PHOSPHOLIPIDS\GLYCERIN\SOYBEAN OIL
     Indication: NUTRITIONAL SUPPLEMENTATION
     Route: 041
     Dates: start: 20160222, end: 20160222
  3. SALVIA MILTIORRHIZA [Concomitant]
     Active Substance: HERBALS
     Indication: PERIPHERAL VENOUS DISEASE

REACTIONS (5)
  - Temperature intolerance [Recovering/Resolving]
  - Pyrexia [Recovering/Resolving]
  - Platelet count decreased [Recovering/Resolving]
  - Chills [Recovering/Resolving]
  - White blood cell count decreased [Recovering/Resolving]

NARRATIVE: CASE EVENT DATE: 20160222
